FAERS Safety Report 13544806 (Version 1)
Quarter: 2017Q2

REPORT INFORMATION
  Report Type: Spontaneous
  Country: IT (occurrence: IT)
  Receive Date: 20170515
  Receipt Date: 20170515
  Transmission Date: 20170830
  Serious: Yes (Life-Threatening)
  Sender: FDA-Public Use
  Company Number: IT-GLAXOSMITHKLINE-IT2017GSK067280

PATIENT
  Age: 78 Year
  Sex: Male

DRUGS (1)
  1. INCRUSE ELLIPTA [Suspect]
     Active Substance: UMECLIDINIUM BROMIDE
     Indication: CHRONIC OBSTRUCTIVE PULMONARY DISEASE
     Dosage: 1 UG, QD
     Route: 055
     Dates: start: 20170427, end: 20170428

REACTIONS (1)
  - Bronchospasm paradoxical [Recovering/Resolving]

NARRATIVE: CASE EVENT DATE: 20170427
